FAERS Safety Report 9992467 (Version 1)
Quarter: 2014Q1

REPORT INFORMATION
  Report Type: Spontaneous
  Country: RU (occurrence: RU)
  Receive Date: 20140310
  Receipt Date: 20140310
  Transmission Date: 20141002
  Serious: Yes (Other)
  Sender: FDA-Public Use
  Company Number: RU-VIIV HEALTHCARE LIMITED-B0975210A

PATIENT
  Sex: Male

DRUGS (3)
  1. KIVEXA [Suspect]
     Indication: HIV INFECTION
     Route: 065
  2. PREZISTA [Suspect]
     Indication: HIV INFECTION
     Route: 065
  3. RITONAVIR [Suspect]
     Indication: HIV INFECTION
     Route: 065

REACTIONS (1)
  - Malignant melanoma [Not Recovered/Not Resolved]
